FAERS Safety Report 9150026 (Version 2)
Quarter: 2013Q1

REPORT INFORMATION
  Report Type: Spontaneous
  Country: US (occurrence: None)
  Receive Date: 20130129
  Receipt Date: 20130206
  Transmission Date: 20140127
  Serious: Yes (Hospitalization, Other)
  Sender: FDA-Public Use
  Company Number: AUR-APL-2013-01012

PATIENT
  Age: 58 Year
  Sex: Female
  Weight: 59 kg

DRUGS (5)
  1. VENLAFAXINE [Suspect]
     Indication: DEPRESSION
     Dosage: 1 D
     Dates: start: 201301, end: 20130114
  2. EFFEXOR XR [Suspect]
     Dosage: 1 D
     Dates: end: 201301
  3. TOPROL XL (METOPROLOL SUCCINATE) [Concomitant]
  4. BONE-UP (CALCIUM) [Concomitant]
  5. EFFEXOR [Suspect]

REACTIONS (10)
  - Osteoporosis [None]
  - Fall [None]
  - Contusion [None]
  - Ankle fracture [None]
  - Upper limb fracture [None]
  - Lower limb fracture [None]
  - Femur fracture [None]
  - Road traffic accident [None]
  - Limb crushing injury [None]
  - Depression [None]
